FAERS Safety Report 15955392 (Version 1)
Quarter: 2019Q1

REPORT INFORMATION
  Report Type: Spontaneous
  Country: PT (occurrence: PT)
  Receive Date: 20190213
  Receipt Date: 20190213
  Transmission Date: 20190417
  Serious: Yes (Other)
  Sender: FDA-Public Use
  Company Number: PT-ACCORD-106958

PATIENT
  Age: 35 Year
  Sex: Female
  Weight: 83 kg

DRUGS (2)
  1. SIMVASTATIN. [Suspect]
     Active Substance: SIMVASTATIN
     Indication: PRODUCT USED FOR UNKNOWN INDICATION
     Dates: start: 201802, end: 201802
  2. ROSUVASTATIN. [Suspect]
     Active Substance: ROSUVASTATIN
     Indication: DYSLIPIDAEMIA
     Route: 048
     Dates: start: 20180525, end: 20180525

REACTIONS (1)
  - Exfoliative rash [Recovering/Resolving]

NARRATIVE: CASE EVENT DATE: 20180525
